FAERS Safety Report 25148726 (Version 2)
Quarter: 2025Q3

REPORT INFORMATION
  Report Type: Report from Study
  Country: CA (occurrence: CA)
  Receive Date: 20250402
  Receipt Date: 20250702
  Transmission Date: 20251021
  Serious: Yes (Other)
  Sender: TAKEDA
  Company Number: CA-TAKEDA-2025TUS030538

PATIENT
  Sex: Female

DRUGS (5)
  1. VEDOLIZUMAB [Suspect]
     Active Substance: VEDOLIZUMAB
     Indication: Colitis ulcerative
     Dates: start: 20241024, end: 20250130
  2. MESALAMINE [Concomitant]
     Active Substance: MESALAMINE
     Dosage: 2.4 GRAM, QD
     Dates: start: 202210
  3. PERINDOPRIL [Concomitant]
     Active Substance: PERINDOPRIL
  4. JARDIANCE [Concomitant]
     Active Substance: EMPAGLIFLOZIN
  5. OZEMPIC [Concomitant]
     Active Substance: SEMAGLUTIDE

REACTIONS (3)
  - Central nervous system neoplasm [Unknown]
  - Lung neoplasm [Unknown]
  - Lung cancer metastatic [Unknown]
